FAERS Safety Report 20221435 (Version 2)
Quarter: 2022Q1

REPORT INFORMATION
  Report Type: Spontaneous
  Country: US (occurrence: US)
  Receive Date: 20211223
  Receipt Date: 20220120
  Transmission Date: 20220424
  Serious: No
  Sender: FDA-Public Use
  Company Number: US-AIMMUNE THERAPEUTICS, INC.-2021AIMT00761

PATIENT

DRUGS (1)
  1. PALFORZIA [Suspect]
     Active Substance: PEANUT
     Indication: Off label use
     Dosage: UNK
     Route: 048
     Dates: start: 2021

REACTIONS (2)
  - Intentional product misuse [Unknown]
  - Product after taste [Unknown]

NARRATIVE: CASE EVENT DATE: 20210101
